FAERS Safety Report 5128901-X (Version None)
Quarter: 2006Q4

REPORT INFORMATION
  Report Type: 
  Country: None (occurrence: None)
  Receive Date: 20061011
  Receipt Date: 20060919
  Transmission Date: 20070319
  Serious: Yes (Other)
  Sender: FDA-Public Use
  Company Number: USA0507103332

PATIENT
  Age: 3 Year
  Sex: Female
  Weight: 11.4 kg

DRUGS (3)
  1. HUMATROPE [Suspect]
     Indication: GROWTH HORMONE DEFICIENCY
     Dosage: 0.6 MG, DAILY (1/D),
     Dates: start: 20050708, end: 20051001
  2. PULMICORT [Concomitant]
  3. HUMATROPEN (HUMATROPEN), PEN, REUSABLE [Concomitant]

REACTIONS (5)
  - COUGH [None]
  - DYSPNOEA [None]
  - GRUNTING [None]
  - LUNG DISORDER [None]
  - PHARMACEUTICAL PRODUCT COMPLAINT [None]
